FAERS Safety Report 5740782-X (Version None)
Quarter: 2008Q2

REPORT INFORMATION
  Report Type: 
  Country: None (occurrence: None)
  Receive Date: 20080515
  Receipt Date: 20080208
  Transmission Date: 20081010
  Serious: No
  Sender: FDA-Public Use
  Company Number: WAES 0802USA02959

PATIENT

DRUGS (1)
  1. TAB ISENTRESS [Suspect]
     Dosage: PO
     Route: 048

REACTIONS (1)
  - DEPRESSION [None]
